FAERS Safety Report 22240053 (Version 1)
Quarter: 2023Q2

REPORT INFORMATION
  Report Type: Spontaneous
  Country: CN (occurrence: CN)
  Receive Date: 20230421
  Receipt Date: 20230421
  Transmission Date: 20230722
  Serious: Yes (Hospitalization, Other)
  Sender: FDA-Public Use
  Company Number: CN-ELI_LILLY_AND_COMPANY-CN202304004197

PATIENT
  Age: 41 Year
  Sex: Female

DRUGS (6)
  1. DULAGLUTIDE [Suspect]
     Active Substance: DULAGLUTIDE
     Indication: Type 2 diabetes mellitus
     Dosage: 1.5 MG, WEEKLY (1/W)
     Route: 058
  2. EMPAGLIFLOZIN [Suspect]
     Active Substance: EMPAGLIFLOZIN
     Indication: Type 2 diabetes mellitus
     Dosage: 5 MG, DAILY
     Route: 065
  3. EMPAGLIFLOZIN [Suspect]
     Active Substance: EMPAGLIFLOZIN
     Dosage: 10 MG, DAILY
     Route: 048
  4. METFORMIN [Concomitant]
     Active Substance: METFORMIN HYDROCHLORIDE
     Indication: Type 2 diabetes mellitus
     Dosage: UNK, UNKNOWN
     Route: 065
  5. ACARBOSE [Concomitant]
     Active Substance: ACARBOSE
     Indication: Type 2 diabetes mellitus
     Dosage: UNK, UNKNOWN
     Route: 065
  6. ACARBOSE [Concomitant]
     Active Substance: ACARBOSE
     Dosage: 0.1 G, TID
     Route: 048

REACTIONS (13)
  - Diabetic ketoacidosis [Recovered/Resolved]
  - Decreased appetite [Recovered/Resolved]
  - Infection [Recovered/Resolved]
  - Vulvovaginal pruritus [Unknown]
  - Haematochezia [Unknown]
  - Hepatic function abnormal [Recovered/Resolved]
  - Dizziness [Recovered/Resolved]
  - Haematemesis [Recovered/Resolved]
  - Peripheral coldness [Unknown]
  - Dry mouth [Unknown]
  - Asthenia [Unknown]
  - Decreased appetite [Recovered/Resolved]
  - Gastrooesophageal reflux disease [Unknown]

NARRATIVE: CASE EVENT DATE: 20210309
